FAERS Safety Report 7508678-0 (Version None)
Quarter: 2011Q2

REPORT INFORMATION
  Report Type: 
  Country: None (occurrence: None)
  Receive Date: 20110527
  Receipt Date: 20100616
  Transmission Date: 20111010
  Serious: No
  Sender: FDA-Public Use
  Company Number: A0865530A

PATIENT
  Age: 58 Year
  Sex: Female

DRUGS (6)
  1. AMBIEN [Concomitant]
  2. TRAMADOL HCL [Concomitant]
  3. VENTOLIN [Suspect]
     Indication: ASTHMA
     Dosage: 2PUFF AS REQUIRED
     Route: 055
  4. LORAZEPAM [Concomitant]
  5. COZAAR [Concomitant]
  6. LABETALOL [Concomitant]

REACTIONS (1)
  - TOOTH FRACTURE [None]
